FAERS Safety Report 5188002-1 (Version None)
Quarter: 2006Q4

REPORT INFORMATION
  Report Type: 
  Country: None (occurrence: None)
  Receive Date: 20061214
  Receipt Date: 20061128
  Transmission Date: 20070319
  Serious: Yes (Hospitalization, Other)
  Sender: FDA-Public Use
  Company Number: 2006BL006583

PATIENT
  Age: 56 Year
  Sex: Male

DRUGS (3)
  1. PREDNISOLONE SODIUM PHOSPHATE [Suspect]
     Indication: HEART TRANSPLANT
     Dosage: 15 MILLIGRAMS; ONCE A DAY
     Dates: start: 20040201
  2. MYCOPHENOLATE MOFETIL [Suspect]
     Indication: HEART TRANSPLANT
     Dosage: 1.25 GRAMS; TWICE A DAY
     Dates: start: 20040201
  3. CYCLOSPORINE [Suspect]
     Indication: HEART TRANSPLANT
     Dosage: 10 MILLIGRAMS PER KILOGRAM); ONCE A DAY
     Dates: start: 20040201

REACTIONS (9)
  - ACINETOBACTER INFECTION [None]
  - CEREBRAL INFARCTION [None]
  - CLOSTRIDIUM DIFFICILE COLITIS [None]
  - COAGULOPATHY [None]
  - GRAND MAL CONVULSION [None]
  - POSTOPERATIVE WOUND INFECTION [None]
  - PULMONARY OEDEMA [None]
  - RENAL FAILURE ACUTE [None]
  - RESPIRATORY DISTRESS [None]
